FAERS Safety Report 11069057 (Version 1)
Quarter: 2015Q2

REPORT INFORMATION
  Report Type: Spontaneous
  Country: US (occurrence: None)
  Receive Date: 20150424
  Receipt Date: 20150424
  Transmission Date: 20150821
  Serious: Yes (Hospitalization)
  Sender: FDA-Public Use
  Company Number: None

PATIENT
  Age: 60 Year
  Sex: Female
  Weight: 56.2 kg

DRUGS (1)
  1. ERIBULIN [Suspect]
     Active Substance: ERIBULIN
     Indication: CERVIX CARCINOMA
     Dosage: 2.1; D1 AND D8 Q 21 DAY
     Route: 042
     Dates: start: 20150218, end: 20150318

REACTIONS (11)
  - Incision site complication [None]
  - Malignant neoplasm progression [None]
  - Purulence [None]
  - Squamous cell carcinoma of the cervix [None]
  - Hydronephrosis [None]
  - Radiation proctitis [None]
  - Dysuria [None]
  - Anaemia [None]
  - Corynebacterium test positive [None]
  - Streptococcus test positive [None]
  - Pyrexia [None]

NARRATIVE: CASE EVENT DATE: 20150329
